FAERS Safety Report 7748054 (Version 3)
Quarter: 2012Q4

REPORT INFORMATION
  Report Type: Report from Study
  Country: US (occurrence: US)
  Receive Date: 20110104
  Receipt Date: 20121217
  Transmission Date: 20130627
  Serious: Yes (Other)
  Sender: FDA-Public Use
  Company Number: US-PURDUE-USA-2010-0061313

PATIENT
  Sex: Male
  Weight: 112.47 kg

DRUGS (9)
  1. OXYCONTIN TABLETS [Suspect]
     Indication: ARTHRALGIA
     Dosage: 80 mg, q12h
     Route: 048
  2. OXYCONTIN TABLETS [Suspect]
     Indication: INTERVERTEBRAL DISC DISORDER
  3. VALIUM                             /00017001/ [Concomitant]
     Indication: ANXIETY
     Dosage: 10 mg, q8- 12h
     Route: 048
  4. BENICAR HCT [Concomitant]
     Indication: HYPERTENSION
     Dosage: 40/12.5 mg, qid
     Route: 048
  5. DESYREL [Concomitant]
     Indication: INSOMNIA
     Dosage: 100 mg, hs
     Route: 048
  6. PHENERGAN                          /00033001/ [Concomitant]
     Indication: NAUSEA
     Dosage: 50 mg, qid
     Route: 048
  7. LORTAB                             /00607101/ [Concomitant]
     Indication: BACK PAIN
     Dosage: 10 mg, q4- 6h
     Route: 048
  8. LORTAB                             /00607101/ [Concomitant]
     Indication: ARTHRALGIA
  9. LORTAB                             /00607101/ [Concomitant]
     Indication: ARTHRALGIA

REACTIONS (3)
  - Knee arthroplasty [Recovered/Resolved]
  - Hip arthroplasty [Recovered/Resolved]
  - Spinal fusion surgery [Recovered/Resolved]
